FAERS Safety Report 11213675 (Version 1)
Quarter: 2015Q2

REPORT INFORMATION
  Report Type: Spontaneous
  Country: ES (occurrence: ES)
  Receive Date: 20150623
  Receipt Date: 20150623
  Transmission Date: 20150821
  Serious: Yes (Hospitalization)
  Sender: FDA-Public Use
  Company Number: ES-MYLANLABS-2015M1020891

PATIENT

DRUGS (2)
  1. METHOTREXATE [Suspect]
     Active Substance: METHOTREXATE
     Indication: PSORIASIS
     Dosage: 10 MG DAILY FOR 15 DAYS
     Route: 048
  2. ADALIMUMAB [Concomitant]
     Active Substance: ADALIMUMAB
     Indication: PSORIASIS
     Route: 065

REACTIONS (10)
  - Pancytopenia [Recovered/Resolved]
  - Septic shock [Recovered/Resolved]
  - Toxicity to various agents [Unknown]
  - Escherichia infection [Recovered/Resolved]
  - Mouth ulceration [Recovering/Resolving]
  - Bacterial infection [Recovered/Resolved]
  - Lip ulceration [Recovering/Resolving]
  - Skin ulcer [Recovering/Resolving]
  - Incorrect dosage administered [Unknown]
  - Accidental overdose [Unknown]
